FAERS Safety Report 7871159 (Version 3)
Quarter: 2013Q1

REPORT INFORMATION
  Report Type: Spontaneous
  Country: US (occurrence: US)
  Receive Date: 20110325
  Receipt Date: 20130131
  Transmission Date: 20140127
  Serious: Yes (Hospitalization, Other)
  Sender: FDA-Public Use
  Company Number: US-BAYER-2011-023517

PATIENT
  Age: 28 Year
  Sex: Female
  Weight: 67 kg

DRUGS (10)
  1. YASMIN [Suspect]
     Indication: MENSTRUAL CYCLE MANAGEMENT
     Dosage: UNK
     Dates: start: 2004, end: 2007
  2. NEOSYNEPHRINE [Concomitant]
     Dosage: UNK
     Route: 045
     Dates: start: 20070501
  3. ZYRTEC [Concomitant]
     Dosage: UNK
     Route: 048
     Dates: start: 20070501
  4. TOPAMAX [Concomitant]
     Dosage: UNK
     Route: 048
     Dates: start: 20070501
  5. LEXAPRO [Concomitant]
     Indication: ANXIETY
     Dosage: UNK
     Route: 048
     Dates: start: 20070501
  6. ALBUTEROL [Concomitant]
     Indication: ASTHMA
     Dosage: UNK, INHALER
     Dates: start: 20070501
  7. TORADOL [Concomitant]
  8. FORADIL [Concomitant]
  9. VISTARIL [Concomitant]
  10. AUGMENTIN [Concomitant]

REACTIONS (3)
  - Cerebrovascular accident [None]
  - Subarachnoid haemorrhage [Recovered/Resolved]
  - Haemorrhagic stroke [None]
